FAERS Safety Report 6219853-X (Version None)
Quarter: 2009Q2

REPORT INFORMATION
  Report Type: 
  Country: None (occurrence: None)
  Receive Date: 20090605
  Receipt Date: 20090522
  Transmission Date: 20091009
  Serious: Yes (Death)
  Sender: FDA-Public Use
  Company Number: IPS_01609_2009

PATIENT
  Sex: Male

DRUGS (7)
  1. APO-GO (APO-GO - APOMORPHINE HYDROCHLORIDE) (NOT SPECIFIED) [Suspect]
     Indication: PARKINSON'S DISEASE
     Dosage: SEE IMAGE
     Route: 058
     Dates: start: 20090312, end: 20090408
  2. APO-GO (APO-GO - APOMORPHINE HYDROCHLORIDE) (NOT SPECIFIED) [Suspect]
     Indication: PARKINSON'S DISEASE
     Dosage: SEE IMAGE
     Route: 058
     Dates: start: 20090408, end: 20090418
  3. REQUIP [Concomitant]
  4. AZILECT /01759902/ [Concomitant]
  5. MADOPAR /00349201/ [Concomitant]
  6. MADOPAR 100 [Concomitant]
  7. PK-MERZ /00055903/ [Concomitant]

REACTIONS (5)
  - DISEASE PROGRESSION [None]
  - FALL [None]
  - OEDEMA [None]
  - PARKINSON'S DISEASE [None]
  - TREMOR [None]
